FAERS Safety Report 12480920 (Version 2)
Quarter: 2016Q2

REPORT INFORMATION
  Report Type: Report from Study
  Country: CA (occurrence: CA)
  Receive Date: 20160620
  Receipt Date: 20160621
  Transmission Date: 20160815
  Serious: Yes (Hospitalization)
  Sender: FDA-Public Use
  Company Number: CA-JNJFOC-20160613307

PATIENT
  Age: 36 Year
  Sex: Female
  Weight: 39.15 kg

DRUGS (11)
  1. REMICADE [Suspect]
     Active Substance: INFLIXIMAB
     Indication: COLITIS ULCERATIVE
     Route: 042
     Dates: start: 201405
  2. BUSCOPAN [Concomitant]
     Active Substance: BUTYLSCOPOLAMINE BROMIDE
     Route: 065
  3. VITAMIN C [Concomitant]
     Active Substance: ASCORBIC ACID
     Route: 065
  4. IMURAN [Concomitant]
     Active Substance: AZATHIOPRINE
     Route: 065
  5. VITAMIN D [Concomitant]
     Active Substance: CHOLECALCIFEROL
     Route: 065
  6. PANTOLOC [Concomitant]
     Active Substance: PANTOPRAZOLE SODIUM
     Route: 065
  7. REMICADE [Suspect]
     Active Substance: INFLIXIMAB
     Indication: COLITIS ULCERATIVE
     Dosage: INFUSION NUMBER 3 TODAY
     Route: 042
     Dates: start: 20160614
  8. REMICADE [Suspect]
     Active Substance: INFLIXIMAB
     Indication: COLITIS ULCERATIVE
     Route: 042
     Dates: start: 20160429
  9. PREDNISONE. [Concomitant]
     Active Substance: PREDNISONE
     Route: 065
  10. MESALAZINE [Concomitant]
     Active Substance: MESALAMINE
     Route: 065
  11. CODEINE [Concomitant]
     Active Substance: CODEINE
     Route: 065

REACTIONS (7)
  - Colitis ulcerative [Not Recovered/Not Resolved]
  - Arthralgia [Unknown]
  - Salmonellosis [Unknown]
  - Peripheral swelling [Unknown]
  - General physical health deterioration [Unknown]
  - Clostridium difficile infection [Unknown]
  - Headache [Unknown]

NARRATIVE: CASE EVENT DATE: 201405
